FAERS Safety Report 13447594 (Version 1)
Quarter: 2017Q2

REPORT INFORMATION
  Report Type: Spontaneous
  Country: US (occurrence: US)
  Receive Date: 20170417
  Receipt Date: 20170417
  Transmission Date: 20170830
  Serious: Yes (Death, Hospitalization)
  Sender: FDA-Public Use
  Company Number: None

PATIENT
  Age: 71 Year
  Sex: Female

DRUGS (1)
  1. LEVOFLOXACIN 500MG [Suspect]
     Active Substance: LEVOFLOXACIN
     Indication: URINARY TRACT INFECTION
     Dates: start: 20161011, end: 20161016

REACTIONS (11)
  - Feeling abnormal [None]
  - Gastrointestinal infection [None]
  - Diarrhoea [None]
  - Weight decreased [None]
  - Hallucination [None]
  - Dehydration [None]
  - Pain [None]
  - Tremor [None]
  - Neuralgia [None]
  - Depressed mood [None]
  - Hypophagia [None]

NARRATIVE: CASE EVENT DATE: 20161011
